FAERS Safety Report 12503225 (Version 1)
Quarter: 2016Q2

REPORT INFORMATION
  Report Type: Report from Study
  Country: US (occurrence: US)
  Receive Date: 20160628
  Receipt Date: 20160628
  Transmission Date: 20160815
  Serious: Yes (Death, Hospitalization)
  Sender: FDA-Public Use
  Company Number: US-ACCORD-041904

PATIENT
  Age: 75 Year
  Sex: Male

DRUGS (6)
  1. ZOLPIDEM [Concomitant]
     Active Substance: ZOLPIDEM\ZOLPIDEM TARTRATE
  2. VISTOGARD [Suspect]
     Active Substance: URIDINE TRIACETATE
     Indication: TOXICITY TO VARIOUS AGENTS
     Dosage: EVERY 8 H FOR A TOTAL OF 8 DOSES?URIDINE TRIACETATE
     Route: 048
  3. OXYCONTIN [Concomitant]
     Active Substance: OXYCODONE HYDROCHLORIDE
  4. WARFARIN [Concomitant]
     Active Substance: WARFARIN
  5. ALPRAZOLAM. [Concomitant]
     Active Substance: ALPRAZOLAM
  6. FLUOROURACIL. [Suspect]
     Active Substance: FLUOROURACIL
     Indication: PANCREATIC CARCINOMA METASTATIC
     Dosage: ARM I: BOLUS HIGH-DOSE 5-FU (2550 MG WEEKLY)
     Route: 040

REACTIONS (15)
  - Neutropenia [Unknown]
  - Tenderness [Unknown]
  - Hepatomegaly [Unknown]
  - Pancytopenia [Fatal]
  - Coagulopathy [Fatal]
  - Decreased appetite [Unknown]
  - Duodenal ulcer perforation [Unknown]
  - Systemic candida [Unknown]
  - Mucosal inflammation [Unknown]
  - International normalised ratio abnormal [Unknown]
  - Asthenia [Unknown]
  - Blood creatinine increased [Unknown]
  - Weight decreased [Unknown]
  - Neurotoxicity [Fatal]
  - Nausea [Unknown]
